FAERS Safety Report 7338486-5 (Version None)
Quarter: 2011Q1

REPORT INFORMATION
  Report Type: 
  Country: None (occurrence: None)
  Receive Date: 20110308
  Receipt Date: 20110228
  Transmission Date: 20110831
  Serious: Yes (Hospitalization)
  Sender: FDA-Public Use
  Company Number: CN-SANOFI-AVENTIS-2011SA012448

PATIENT
  Age: 27 Year
  Sex: Male
  Weight: 50 kg

DRUGS (2)
  1. LANTUS [Suspect]
     Indication: DIABETES MELLITUS
     Route: 058
     Dates: start: 20101226
  2. HUMALOG [Concomitant]
     Route: 058
     Dates: start: 20101226

REACTIONS (6)
  - NEPHROPATHY [None]
  - NEPHROLITHIASIS [None]
  - IRRITABLE BOWEL SYNDROME [None]
  - GASTRITIS [None]
  - VOMITING [None]
  - ABDOMINAL PAIN [None]
